FAERS Safety Report 9520688 (Version 1)
Quarter: 2013Q3

REPORT INFORMATION
  Report Type: Spontaneous
  Country: BR (occurrence: BR)
  Receive Date: 20130913
  Receipt Date: 20130913
  Transmission Date: 20140515
  Serious: Yes (Other)
  Sender: FDA-Public Use
  Company Number: BR-ASTRAZENECA-2013SE67630

PATIENT
  Age: 67 Year
  Sex: Female
  Weight: 100 kg

DRUGS (5)
  1. SELOZOK [Suspect]
     Indication: TACHYCARDIA
     Route: 048
     Dates: start: 2007, end: 2008
  2. SELOZOK [Suspect]
     Indication: TACHYCARDIA
     Route: 048
     Dates: start: 2008, end: 201309
  3. SELOZOK [Suspect]
     Indication: TACHYCARDIA
     Route: 048
     Dates: start: 201309
  4. INDAPEN//INDAPAMIDE [Suspect]
     Indication: HYPERTENSION
     Route: 065
     Dates: end: 20130822
  5. DIOVAN [Concomitant]
     Indication: HYPERTENSION

REACTIONS (6)
  - Blood pressure increased [Recovered/Resolved]
  - Tachycardia [Recovering/Resolving]
  - Tachycardia [Recovered/Resolved]
  - Asthenia [Recovered/Resolved]
  - Blood pressure decreased [Recovered/Resolved]
  - Off label use [Not Recovered/Not Resolved]
